FAERS Safety Report 8536857-2 (Version None)
Quarter: 2012Q3

REPORT INFORMATION
  Report Type: 
  Country: None (occurrence: None)
  Receive Date: 20120725
  Receipt Date: 20120717
  Transmission Date: 20120928
  Serious: Yes (Other)
  Sender: FDA-Public Use
  Company Number: JP-VERTEX PHARMACEUTICALS INC.-AE-2012-010738

PATIENT
  Age: 56 Year
  Sex: Female

DRUGS (6)
  1. PEG-INTRON [Concomitant]
     Route: 058
     Dates: start: 20120420, end: 20120601
  2. PRIMPERAN TAB [Concomitant]
     Route: 048
     Dates: start: 20120331, end: 20120412
  3. REBETOL [Concomitant]
     Indication: HEPATITIS C
     Route: 048
     Dates: start: 20120330, end: 20120509
  4. PEG-INTRON [Concomitant]
     Indication: HEPATITIS C
     Route: 058
     Dates: start: 20120330, end: 20120413
  5. TELAVIC (TELAPREVIR) [Suspect]
     Indication: HEPATITIS C
     Route: 048
     Dates: start: 20120330, end: 20120604
  6. REBETOL [Concomitant]
     Route: 048
     Dates: start: 20120510, end: 20120518

REACTIONS (1)
  - RETINOPATHY [None]
